APPROVED DRUG PRODUCT: NALOXONE HYDROCHLORIDE
Active Ingredient: NALOXONE HYDROCHLORIDE
Strength: 1MG/ML
Dosage Form/Route: INJECTABLE;INJECTION
Application: A213573 | Product #002 | TE Code: AP
Applicant: FRESENIUS KABI USA LLC
Approved: Apr 2, 2024 | RLD: No | RS: No | Type: RX